FAERS Safety Report 8573183-X (Version None)
Quarter: 2012Q3

REPORT INFORMATION
  Report Type: 
  Country: None (occurrence: None)
  Receive Date: 20120806
  Receipt Date: 20120723
  Transmission Date: 20120928
  Serious: No
  Sender: FDA-Public Use
  Company Number: US-ASTRAZENECA-2011SE78103

PATIENT
  Age: 57 Year
  Sex: Female

DRUGS (1)
  1. ZOMIG [Suspect]
     Route: 048

REACTIONS (6)
  - HEARING IMPAIRED [None]
  - COUGH [None]
  - NASOPHARYNGITIS [None]
  - MIGRAINE [None]
  - COGNITIVE DISORDER [None]
  - MALAISE [None]
